FAERS Safety Report 14610271 (Version 4)
Quarter: 2018Q4

REPORT INFORMATION
  Report Type: Spontaneous
  Country: DE (occurrence: DE)
  Receive Date: 20180307
  Receipt Date: 20181025
  Transmission Date: 20190204
  Serious: Yes (Hospitalization)
  Sender: FDA-Public Use
  Company Number: DE-BIOGEN-2018BI00536444

PATIENT
  Age: 41 Year
  Sex: Female

DRUGS (9)
  1. LYRICA [Concomitant]
     Active Substance: PREGABALIN
     Dosage: 50-0-75 MG
     Route: 065
  2. LYRICA [Concomitant]
     Active Substance: PREGABALIN
     Indication: PAIN
     Route: 065
     Dates: end: 20170306
  3. TECFIDERA [Suspect]
     Active Substance: DIMETHYL FUMARATE
     Route: 048
     Dates: start: 20180130, end: 20180130
  4. TECFIDERA [Suspect]
     Active Substance: DIMETHYL FUMARATE
     Route: 048
     Dates: start: 20180201, end: 20180209
  5. PANTOPRAZOLE [Concomitant]
     Active Substance: PANTOPRAZOLE
     Indication: PROPHYLAXIS
     Route: 048
  6. ZINBRYTA [Suspect]
     Active Substance: DACLIZUMAB
     Indication: RELAPSING-REMITTING MULTIPLE SCLEROSIS
     Route: 058
     Dates: start: 201701, end: 201711
  7. TECFIDERA [Suspect]
     Active Substance: DIMETHYL FUMARATE
     Indication: MULTIPLE SCLEROSIS
     Route: 048
     Dates: start: 20180123, end: 20180129
  8. TECFIDERA [Suspect]
     Active Substance: DIMETHYL FUMARATE
     Route: 048
     Dates: start: 20180130, end: 20180130
  9. LYRICA [Concomitant]
     Active Substance: PREGABALIN
     Route: 065

REACTIONS (12)
  - Blood cholesterol increased [Unknown]
  - Acute generalised exanthematous pustulosis [Unknown]
  - Prescribed underdose [Recovered/Resolved]
  - Subileus [Not Recovered/Not Resolved]
  - Muscle spasticity [Unknown]
  - Seborrhoeic dermatitis [Not Recovered/Not Resolved]
  - Perioral dermatitis [Unknown]
  - Paronychia [Unknown]
  - Multiple sclerosis relapse [Unknown]
  - Psoriasis [Unknown]
  - Multiple sclerosis [Unknown]
  - Erythema multiforme [Not Recovered/Not Resolved]

NARRATIVE: CASE EVENT DATE: 2017
